FAERS Safety Report 8121201-5 (Version None)
Quarter: 2012Q1

REPORT INFORMATION
  Report Type: 
  Country: None (occurrence: None)
  Receive Date: 20120208
  Receipt Date: 20120124
  Transmission Date: 20120608
  Serious: Yes (Other)
  Sender: FDA-Public Use
  Company Number: US-BAYER-2012-008184

PATIENT
  Age: 53 Year
  Sex: Female
  Weight: 50 kg

DRUGS (2)
  1. ALKA-SELTZER PLUS NIGHT COLD [Suspect]
     Dosage: BOTTLE COUNT 20CT
     Route: 048
     Dates: start: 20110605, end: 20110605
  2. NASAL PREPARATIONS [Concomitant]
     Route: 045

REACTIONS (6)
  - DYSPNOEA [None]
  - SPEECH DISORDER [None]
  - NASAL CONGESTION [None]
  - THROAT TIGHTNESS [None]
  - THROAT IRRITATION [None]
  - DRUG HYPERSENSITIVITY [None]
